FAERS Safety Report 25988782 (Version 1)
Quarter: 2025Q4

REPORT INFORMATION
  Report Type: Spontaneous
  Country: US (occurrence: US)
  Receive Date: 20251103
  Receipt Date: 20251103
  Transmission Date: 20260118
  Serious: No
  Sender: BRISTOL-MYERS SQUIBB COMPANY
  Company Number: US-EXELIXIS-EXL-2025-011820

PATIENT
  Age: 59 Year
  Sex: Male

DRUGS (2)
  1. OPDIVO [Suspect]
     Active Substance: NIVOLUMAB
     Indication: Renal cancer
  2. CABOMETYX [Suspect]
     Active Substance: CABOZANTINIB S-MALATE
     Indication: Renal cancer
     Route: 048
     Dates: start: 202508

REACTIONS (7)
  - Hyperkeratosis [Unknown]
  - Fatigue [Unknown]
  - Dysgeusia [Unknown]
  - Constipation [Unknown]
  - Alopecia [Unknown]
  - Rash [Recovered/Resolved]
  - Nausea [Unknown]
